FAERS Safety Report 5460553-1 (Version None)
Quarter: 2007Q3

REPORT INFORMATION
  Report Type: 
  Country: None (occurrence: None)
  Receive Date: 20070919
  Receipt Date: 20070910
  Transmission Date: 20080115
  Serious: Yes (Other)
  Sender: FDA-Public Use
  Company Number: US-PFIZER INC-2007022603

PATIENT
  Sex: Female
  Weight: 76.2 kg

DRUGS (1)
  1. LIPITOR [Suspect]
     Dates: start: 20061101, end: 20061201

REACTIONS (13)
  - ANXIETY [None]
  - ARTHRALGIA [None]
  - BACK PAIN [None]
  - FEELING OF BODY TEMPERATURE CHANGE [None]
  - GAIT DISTURBANCE [None]
  - HYPERTENSION [None]
  - INFLAMMATION [None]
  - MONOCYTE COUNT INCREASED [None]
  - MYALGIA [None]
  - OEDEMA PERIPHERAL [None]
  - PAIN IN EXTREMITY [None]
  - RED BLOOD CELL SEDIMENTATION RATE INCREASED [None]
  - URINE LEUKOCYTE ESTERASE POSITIVE [None]
